FAERS Safety Report 12559855 (Version 1)
Quarter: 2016Q3

REPORT INFORMATION
  Report Type: Spontaneous
  Country: CN (occurrence: CN)
  Receive Date: 20160715
  Receipt Date: 20160715
  Transmission Date: 20161109
  Serious: Yes (Hospitalization)
  Sender: FDA-Public Use
  Company Number: CN-PFIZER INC-2016341174

PATIENT
  Age: 61 Year
  Sex: Male
  Weight: 68 kg

DRUGS (3)
  1. CAMPTO [Suspect]
     Active Substance: IRINOTECAN
     Indication: MALIGNANT ANORECTAL NEOPLASM
     Dosage: 100 MG,ONCE A DAY
     Route: 041
     Dates: start: 20160105, end: 20160105
  2. ELOXATIN [Suspect]
     Active Substance: OXALIPLATIN
     Indication: MALIGNANT ANORECTAL NEOPLASM
     Dosage: 50 MG, ONCE A DAY
     Route: 041
     Dates: start: 20160105, end: 20160105
  3. FLUOROURACIL. [Suspect]
     Active Substance: FLUOROURACIL
     Indication: MALIGNANT ANORECTAL NEOPLASM
     Dosage: 5000 MG, ONCE A DAY
     Route: 041
     Dates: start: 20160105, end: 20160105

REACTIONS (3)
  - Abdominal pain upper [Recovered/Resolved]
  - Abdominal distension [Unknown]
  - Intestinal obstruction [Recovering/Resolving]

NARRATIVE: CASE EVENT DATE: 20160108
